FAERS Safety Report 10763909 (Version 2)
Quarter: 2015Q1

REPORT INFORMATION
  Report Type: Report from Study
  Country: DE (occurrence: CO)
  Receive Date: 20150204
  Receipt Date: 20150313
  Transmission Date: 20150721
  Serious: Yes (Hospitalization, Other)
  Sender: FDA-Public Use
  Company Number: DE-ACTELION-A-US2015-112280

PATIENT
  Age: 48 Year
  Sex: Female

DRUGS (8)
  1. BOSENTAN [Concomitant]
     Active Substance: BOSENTAN\BOSENTAN MONOHYDRATE
     Indication: PRODUCT USED FOR UNKNOWN INDICATION
  2. NIFEDIPINO [Concomitant]
     Dosage: UNK
     Dates: start: 2002
  3. VENTAVIS [Suspect]
     Active Substance: ILOPROST
     Indication: PULMONARY HYPERTENSION
     Dosage: 10 MCG/ML, Q4HRS
     Route: 055
     Dates: start: 20081120
  4. EPAMIN [Concomitant]
     Active Substance: PHENYTOIN SODIUM
     Dosage: UNK
     Dates: start: 2002
  5. FUROSEMIDE. [Concomitant]
     Active Substance: FUROSEMIDE
     Dosage: UNK
     Dates: start: 2002
  6. ESPIRONOLACTONA [Concomitant]
     Active Substance: SPIRONOLACTONE
     Dosage: UNK
     Dates: start: 2002
  7. WARFARIN [Concomitant]
     Active Substance: WARFARIN
     Dosage: UNK
     Dates: start: 2002
  8. METILDIGOXIN [Concomitant]
     Active Substance: METILDIGOXIN
     Dosage: UNK

REACTIONS (12)
  - Haemoglobin decreased [Unknown]
  - Eye irritation [Not Recovered/Not Resolved]
  - Discomfort [Unknown]
  - Inappropriate schedule of drug administration [Unknown]
  - Pulmonary embolism [Unknown]
  - Cheilitis [Not Recovered/Not Resolved]
  - Cough [Not Recovered/Not Resolved]
  - Chest pain [Unknown]
  - Hypotension [Unknown]
  - Stomatitis [Not Recovered/Not Resolved]
  - Vomiting [Unknown]
  - Pulmonary oedema [Recovered/Resolved]

NARRATIVE: CASE EVENT DATE: 20141201
